FAERS Safety Report 13637292 (Version 2)
Quarter: 2017Q2

REPORT INFORMATION
  Report Type: Spontaneous
  Country: US (occurrence: US)
  Receive Date: 20170609
  Receipt Date: 20170613
  Transmission Date: 20170830
  Serious: Yes (Other)
  Sender: FDA-Public Use
  Company Number: US-PFIZER INC-2017248210

PATIENT
  Sex: Male

DRUGS (2)
  1. XELJANZ [Suspect]
     Active Substance: TOFACITINIB CITRATE
     Indication: ARTHRALGIA
     Dosage: 5 MG, UNK
  2. XELJANZ [Suspect]
     Active Substance: TOFACITINIB CITRATE
     Indication: JOINT SWELLING

REACTIONS (10)
  - Dry eye [Unknown]
  - Dyspnoea [Unknown]
  - Dry mouth [Unknown]
  - Cough [Unknown]
  - Fatigue [Unknown]
  - Musculoskeletal stiffness [Unknown]
  - Paraesthesia [Unknown]
  - Muscular weakness [Unknown]
  - Abdominal pain [Unknown]
  - Blindness [Unknown]
